FAERS Safety Report 8829875 (Version 1)
Quarter: 2012Q4

REPORT INFORMATION
  Report Type: Spontaneous
  Country: US (occurrence: None)
  Receive Date: 20121005
  Receipt Date: 20121005
  Transmission Date: 20130627
  Serious: Yes (Other)
  Sender: FDA-Public Use
  Company Number: None

PATIENT
  Age: 46 Year
  Sex: Female
  Weight: 124.74 kg

DRUGS (1)
  1. MUCUS RELIEF COUGH [Suspect]
     Indication: FLU
     Dosage: 1 pill every 4 hours po
     Route: 048
     Dates: start: 20120926, end: 20121001

REACTIONS (1)
  - Palpitations [None]
